FAERS Safety Report 23938702 (Version 1)
Quarter: 2024Q2

REPORT INFORMATION
  Report Type: Spontaneous
  Country: US (occurrence: US)
  Receive Date: 20240604
  Receipt Date: 20240604
  Transmission Date: 20240716
  Serious: No
  Sender: FDA-Public Use
  Company Number: US-PFIZER INC-PV202400072623

PATIENT

DRUGS (3)
  1. DILTIAZEM HYDROCHLORIDE [Suspect]
     Active Substance: DILTIAZEM HYDROCHLORIDE
     Dosage: UNK
     Dates: start: 2024
  2. IRON [Concomitant]
     Active Substance: IRON
     Dosage: SUPPLEMENT
  3. COENZYME Q10 [Concomitant]
     Active Substance: DIETARY SUPPLEMENT\UBIDECARENONE
     Dosage: UNK

REACTIONS (3)
  - Rash [Unknown]
  - Rash erythematous [Unknown]
  - Rash papular [Unknown]

NARRATIVE: CASE EVENT DATE: 20240101
